FAERS Safety Report 8298255-9 (Version None)
Quarter: 2012Q2

REPORT INFORMATION
  Report Type: 
  Country: None (occurrence: None)
  Receive Date: 20120419
  Receipt Date: 20120209
  Transmission Date: 20120825
  Serious: No
  Sender: FDA-Public Use
  Company Number: US-BRISTOL-MYERS SQUIBB COMPANY-16392417

PATIENT

DRUGS (1)
  1. YERVOY [Suspect]
     Dosage: FINISHED TREATMENT 2 MONTHS AGO
     Dates: end: 20110101

REACTIONS (1)
  - INFLAMMATION [None]
